FAERS Safety Report 15954285 (Version 1)
Quarter: 2019Q1

REPORT INFORMATION
  Report Type: Spontaneous
  Country: GB (occurrence: GB)
  Receive Date: 20190212
  Receipt Date: 20190212
  Transmission Date: 20190417
  Serious: Yes (Other)
  Sender: FDA-Public Use
  Company Number: GB-PFIZER INC-2019057123

PATIENT
  Age: 62 Year
  Sex: Male
  Weight: 106 kg

DRUGS (2)
  1. AMLODIPINE BESILATE [Suspect]
     Active Substance: AMLODIPINE BESYLATE
     Dosage: 5 MG, UNK
     Dates: start: 20170829
  2. INDAPAMIDE. [Concomitant]
     Active Substance: INDAPAMIDE
     Dosage: 1 DF, 1X/DAY (EACH MORNING)
     Dates: start: 20170829, end: 20190114

REACTIONS (3)
  - Joint swelling [Recovered/Resolved]
  - Loss of libido [Unknown]
  - Dizziness [Unknown]

NARRATIVE: CASE EVENT DATE: 20190114
